FAERS Safety Report 7757208-7 (Version None)
Quarter: 2011Q3

REPORT INFORMATION
  Report Type: 
  Country: None (occurrence: None)
  Receive Date: 20110916
  Receipt Date: 20110908
  Transmission Date: 20111222
  Serious: Yes (Hospitalization)
  Sender: FDA-Public Use
  Company Number: FR-MILLENNIUM PHARMACEUTICALS, INC.-2011-04192

PATIENT

DRUGS (9)
  1. VELCADE [Suspect]
     Indication: MULTIPLE MYELOMA
     Dosage: 3.5 MG, UNK
     Route: 065
     Dates: start: 20110617, end: 20110627
  2. ACETAMINOPHEN [Concomitant]
  3. RENITEC                            /00574901/ [Concomitant]
     Dosage: 20 MG, UNK
  4. DEXAMETHASONE [Suspect]
     Indication: MULTIPLE MYELOMA
     Dosage: UNK
     Route: 065
     Dates: start: 20110617, end: 20110627
  5. PREVISCAN                          /00789001/ [Concomitant]
     Dosage: 15 MG, UNK
  6. BACTRIM [Suspect]
     Indication: PRODUCT USED FOR UNKNOWN INDICATION
     Dosage: UNK
     Route: 048
     Dates: start: 20110620
  7. LIPANOR [Concomitant]
     Dosage: 100 MG, UNK
     Route: 048
  8. VALACICLOVIR [Suspect]
     Indication: INFECTION PROPHYLAXIS
     Dosage: 500 MG, UNK
     Route: 048
     Dates: start: 20110620, end: 20110702
  9. SPAGULAX [Concomitant]

REACTIONS (1)
  - DRUG RASH WITH EOSINOPHILIA AND SYSTEMIC SYMPTOMS [None]
